FAERS Safety Report 10340951 (Version 2)
Quarter: 2014Q3

REPORT INFORMATION
  Report Type: Spontaneous
  Country: US (occurrence: US)
  Receive Date: 20140724
  Receipt Date: 20140724
  Transmission Date: 20150326
  Serious: No
  Sender: FDA-Public Use
  Company Number: US-MYLANLABS-2013S1018428

PATIENT
  Age: 61 Year
  Sex: Male
  Weight: 108.86 kg

DRUGS (2)
  1. LEVOTHYROXINE SODIUM TABLETS, USP [Suspect]
     Active Substance: LEVOTHYROXINE SODIUM
     Indication: HYPOTHYROIDISM
     Route: 048
     Dates: start: 201202, end: 201308
  2. LEVOTHYROXINE SODIUM TABLETS, USP [Suspect]
     Active Substance: LEVOTHYROXINE SODIUM
     Indication: HYPOTHYROIDISM
     Route: 048
     Dates: start: 201202, end: 201308

REACTIONS (7)
  - Dizziness [Recovered/Resolved]
  - Vision blurred [Recovered/Resolved]
  - Peripheral swelling [Recovered/Resolved]
  - Migraine [Recovered/Resolved]
  - Reaction to drug excipients [Recovered/Resolved]
  - Balance disorder [Recovered/Resolved]
  - Vomiting [Recovered/Resolved]

NARRATIVE: CASE EVENT DATE: 201202
